FAERS Safety Report 18358646 (Version 1)
Quarter: 2020Q4

REPORT INFORMATION
  Report Type: Spontaneous
  Country: US (occurrence: US)
  Receive Date: 20201006
  Receipt Date: 20201006
  Transmission Date: 20210114
  Serious: Yes (Hospitalization)
  Sender: FDA-Public Use
  Company Number: None

PATIENT
  Sex: Male

DRUGS (20)
  1. POLYETH GLYC [Concomitant]
     Active Substance: POLYETHYLENE GLYCOLS
  2. CLOTRIM/BETA [Concomitant]
  3. GAVILYTE G [Concomitant]
     Active Substance: POLYETHYLENE GLYCOL 3350\POTASSIUM CHLORIDE\SODIUM BICARBONATE\SODIUM CHLORIDE\SODIUM SULFATE
  4. LOPERAMIDE [Concomitant]
     Active Substance: LOPERAMIDE
  5. LORAZEPAM. [Concomitant]
     Active Substance: LORAZEPAM
  6. OXYCODONE AND ACETAMINOPHEN [Concomitant]
     Active Substance: ACETAMINOPHEN\OXYCODONE HYDROCHLORIDE
  7. OXYCODONE [Concomitant]
     Active Substance: OXYCODONE
  8. ZINC SULFATE. [Concomitant]
     Active Substance: ZINC SULFATE
  9. CAPECITABINE 500MG TAB [Suspect]
     Active Substance: CAPECITABINE
     Indication: COLON CANCER
     Dosage: OTHER DOSE:4 TABS - 3 TABS;OTHER FREQUENCY:QAM - QPM;OTHER ROUTE:PO-D1-14 -REP Q21D?
     Route: 048
     Dates: start: 20200730
  10. DOXYCYCL HYC [Concomitant]
  11. METRONIDAZOL [Concomitant]
     Active Substance: METRONIDAZOLE
  12. NARCAN [Concomitant]
     Active Substance: NALOXONE HYDROCHLORIDE
  13. VITAMIN B1 [Concomitant]
     Active Substance: THIAMINE HYDROCHLORIDE
  14. BENZONATE [Concomitant]
     Active Substance: BENZONATATE
  15. METHOCARBAM [Concomitant]
     Active Substance: METHOCARBAMOL
  16. LIDO/PRILOCN CRE [Concomitant]
  17. NEOMYCIN. [Concomitant]
     Active Substance: NEOMYCIN
  18. PROCHLORPER [Concomitant]
  19. DIPHEN/ATROP [Concomitant]
     Active Substance: ATROPINE SULFATE\DIPHENOXYLATE
  20. ONDANSETRON [Concomitant]
     Active Substance: ONDANSETRON

REACTIONS (1)
  - Adverse drug reaction [None]
